FAERS Safety Report 8773423 (Version 2)
Quarter: 2013Q2

REPORT INFORMATION
  Report Type: Spontaneous
  Country: US (occurrence: US)
  Receive Date: 20120907
  Receipt Date: 20130513
  Transmission Date: 20140414
  Serious: No
  Sender: FDA-Public Use
  Company Number: US-009507513-1209USA000780

PATIENT
  Sex: Male

DRUGS (1)
  1. PROPECIA [Suspect]
     Indication: ANDROGENETIC ALOPECIA
     Dosage: UNK
     Route: 048
     Dates: start: 199803

REACTIONS (3)
  - Sexual dysfunction [Not Recovered/Not Resolved]
  - Cognitive disorder [Unknown]
  - Erectile dysfunction [Not Recovered/Not Resolved]
